FAERS Safety Report 14608260 (Version 5)
Quarter: 2018Q4

REPORT INFORMATION
  Report Type: Spontaneous
  Country: US (occurrence: US)
  Receive Date: 20180307
  Receipt Date: 20181025
  Transmission Date: 20190204
  Serious: No
  Sender: FDA-Public Use
  Company Number: US-PFIZER INC-2018059555

PATIENT
  Age: 77 Year
  Sex: Female
  Weight: 70.75 kg

DRUGS (15)
  1. SYNTHROID [Concomitant]
     Active Substance: LEVOTHYROXINE SODIUM
     Indication: THYROIDECTOMY
     Dosage: 88 UG, 1X/DAY (ONCE A DAY IN THE MORNING)
     Route: 048
     Dates: start: 2006
  2. VITAMIN D3 [Concomitant]
     Active Substance: CHOLECALCIFEROL
     Dosage: 2000 IU, 2X/DAY (ONCE A DAY ON ONE DAY SHE TAKES 2 TABLETS THE NEXT DAY SHE TAKE ONE TABLET)
     Route: 048
  3. COREG [Concomitant]
     Active Substance: CARVEDILOL
     Dosage: UNK
  4. LEVOTHYROXINE. [Concomitant]
     Active Substance: LEVOTHYROXINE
     Dosage: UNK
  5. POTASSIUM CHLORIDE. [Concomitant]
     Active Substance: POTASSIUM CHLORIDE
     Indication: BLOOD POTASSIUM DECREASED
     Dosage: 20 MEQ, 2X/DAY (ONE IN THE MORNING AND ONE IN THE EVENING)
     Route: 048
  6. MAGNESIUM OXIDE. [Concomitant]
     Active Substance: MAGNESIUM OXIDE
     Indication: BLOOD MAGNESIUM DECREASED
     Dosage: 400 MG, 2X/DAY
     Route: 048
  7. HYDROCHLOROTHIAZIDE. [Concomitant]
     Active Substance: HYDROCHLOROTHIAZIDE
     Indication: FLUID RETENTION
     Dosage: 25 MG, 1X/DAY (ONCE A DAY IN THE MORNING)
     Route: 048
     Dates: start: 201807
  8. VITAMIN D3 [Concomitant]
     Active Substance: CHOLECALCIFEROL
     Indication: VITAMIN D DEFICIENCY
     Dosage: 2000 IU, 1X/DAY (ONCE A DAY ON ONE DAY SHE TAKES 2 TABLETS THE NEXT DAY SHE TAKE ONE TABLET)
     Route: 048
  9. CARVEDILOL PFIZER [Concomitant]
     Active Substance: CARVEDILOL
     Indication: BLOOD PRESSURE ABNORMAL
     Dosage: 12.5 MG, 2X/DAY
     Route: 048
  10. PRAVASTATIN SODIUM. [Concomitant]
     Active Substance: PRAVASTATIN SODIUM
     Indication: BLOOD CHOLESTEROL ABNORMAL
     Dosage: 20 MG, 1X/DAY
     Route: 048
  11. SUTENT [Suspect]
     Active Substance: SUNITINIB MALATE
     Dosage: 37.5 MG, 1X/DAY
     Route: 048
     Dates: start: 20180406, end: 20180927
  12. MAGNESIUM [Concomitant]
     Active Substance: MAGNESIUM
     Dosage: UNK
  13. SUTENT [Suspect]
     Active Substance: SUNITINIB MALATE
     Indication: CARCINOID TUMOUR OF THE GASTROINTESTINAL TRACT
     Dosage: 37.5 MG, CYCLIC
     Dates: start: 20180219
  14. CYCLOBENZAPRINE. [Concomitant]
     Active Substance: CYCLOBENZAPRINE
     Dosage: UNK
  15. NIFEDIPINE. [Concomitant]
     Active Substance: NIFEDIPINE
     Indication: BLOOD PRESSURE MEASUREMENT
     Dosage: 60 MG, 1X/DAY (ONCE A DAY AT BEDTIME)
     Route: 048

REACTIONS (17)
  - Asthenia [Recovering/Resolving]
  - Dry skin [Unknown]
  - Hypoacusis [Unknown]
  - Weight decreased [Unknown]
  - Feeling cold [Unknown]
  - Anaemia [Unknown]
  - Pallor [Unknown]
  - Blood test abnormal [Unknown]
  - Product use in unapproved indication [Unknown]
  - Vision blurred [Unknown]
  - Nausea [Unknown]
  - Diarrhoea [Recovering/Resolving]
  - Contusion [Unknown]
  - Skin exfoliation [Unknown]
  - Dysgeusia [Recovering/Resolving]
  - Renal disorder [Unknown]
  - Dysphonia [Recovering/Resolving]

NARRATIVE: CASE EVENT DATE: 2018
